FAERS Safety Report 9826850 (Version 2)
Quarter: 2014Q1

REPORT INFORMATION
  Report Type: Report from Study
  Country: SE (occurrence: SE)
  Receive Date: 20140117
  Receipt Date: 20140117
  Transmission Date: 20141002
  Serious: No
  Sender: FDA-Public Use
  Company Number: SE-SA-CAMP-1002846

PATIENT
  Age: 37 Year
  Sex: Female
  Weight: 65.5 kg

DRUGS (6)
  1. ALEMTUZUMAB [Suspect]
     Indication: MULTIPLE SCLEROSIS
     Dosage: 12 MG, QD
     Route: 042
     Dates: start: 20100614, end: 20100616
  2. ALEMTUZUMAB [Suspect]
     Indication: MULTIPLE SCLEROSIS
     Dosage: 12 MG, QD
     Route: 042
     Dates: start: 20090601, end: 20090605
  3. METHYLPREDNISOLONE [Concomitant]
     Indication: MULTIPLE SCLEROSIS
     Dosage: 1000 MG, QD
     Route: 042
     Dates: start: 20090601, end: 20090603
  4. METHYLPREDNISOLONE [Concomitant]
     Indication: MULTIPLE SCLEROSIS
     Dosage: 1000 MG, QD
     Route: 042
     Dates: start: 20100614, end: 20100616
  5. LACTULOSE [Concomitant]
     Indication: CONSTIPATION
     Dosage: 670 MG/ML, UNK DOSE:670 MILLIGRAM(S)/MILLILITRE
     Route: 048
     Dates: start: 20120829
  6. THIAMAZOLE [Concomitant]
     Indication: BASEDOW^S DISEASE
     Dosage: 15 MG, BID
     Route: 048
     Dates: start: 20121009

REACTIONS (1)
  - Type 1 diabetes mellitus [Not Recovered/Not Resolved]
